FAERS Safety Report 4401379-7 (Version None)
Quarter: 2004Q3

REPORT INFORMATION
  Report Type: 
  Country: None (occurrence: None)
  Receive Date: 20040907
  Receipt Date: 20040402
  Transmission Date: 20050211
  Serious: No
  Sender: FDA-Public Use
  Company Number: US-BRISTOL-MYERS SQUIBB COMPANY-12550539

PATIENT
  Age: 76 Year
  Sex: Male
  Weight: 93 kg

DRUGS (9)
  1. COUMADIN [Suspect]
     Indication: HEART VALVE OPERATION
     Dosage: CURRENT DOSAGE: 6MG DAILY
     Route: 048
     Dates: start: 20030901
  2. DIOVAN [Concomitant]
  3. SPIRONOLACTONE [Concomitant]
  4. LANOXIN [Concomitant]
  5. HYDROCHLOROTHIAZIDE [Concomitant]
  6. NORVASC [Concomitant]
  7. ASPIRIN [Concomitant]
  8. VITAMIN E [Concomitant]
  9. VITAMIN C [Concomitant]

REACTIONS (1)
  - PHARYNGOLARYNGEAL PAIN [None]
